FAERS Safety Report 6914064-4 (Version None)
Quarter: 2010Q3

REPORT INFORMATION
  Report Type: 
  Country: None (occurrence: None)
  Receive Date: 20100809
  Receipt Date: 20100803
  Transmission Date: 20110219
  Serious: Yes (Death)
  Sender: FDA-Public Use
  Company Number: PHBS2006US15844

PATIENT
  Age: 66 Year
  Sex: Female

DRUGS (5)
  1. BASILIXIMAB [Suspect]
     Indication: ACUTE GRAFT VERSUS HOST DISEASE
     Dosage: 20 MG/DAY
  2. BASILIXIMAB [Suspect]
     Indication: LIVER TRANSPLANT
  3. TACROLIMUS [Concomitant]
     Indication: ACUTE GRAFT VERSUS HOST DISEASE
     Dosage: 0.5-5 MG/DAY
     Route: 048
  4. TACROLIMUS [Concomitant]
     Indication: LIVER TRANSPLANT
  5. MYCOPHENOLATE MOFETIL [Concomitant]
     Indication: LIVER TRANSPLANT

REACTIONS (2)
  - ENTEROCOCCAL SEPSIS [None]
  - MULTI-ORGAN FAILURE [None]
